FAERS Safety Report 9991827 (Version 3)
Quarter: 2014Q3

REPORT INFORMATION
  Report Type: Report from Study
  Country: GB (occurrence: GB)
  Receive Date: 20140310
  Receipt Date: 20140724
  Transmission Date: 20150326
  Serious: Yes (Other)
  Sender: FDA-Public Use
  Company Number: PHFR2014GB001869

PATIENT
  Age: 21 Year
  Sex: Female
  Weight: 88 kg

DRUGS (6)
  1. ACZ885 [Suspect]
     Active Substance: CANAKINUMAB
     Indication: TUMOUR NECROSIS FACTOR RECEPTOR-ASSOCIATED PERIODIC SYNDROME
     Dosage: 150 MG, UNK
     Route: 058
     Dates: start: 20110317
  2. MICROGYNON [Concomitant]
     Active Substance: ETHINYL ESTRADIOL\LEVONORGESTREL ACETATE
     Indication: CONTRACEPTION
     Dosage: 1 DF, UNK
     Route: 048
     Dates: start: 20110510
  3. ACZ885 [Suspect]
     Active Substance: CANAKINUMAB
     Indication: OFF LABEL USE
  4. TRAMADOL [Concomitant]
     Active Substance: TRAMADOL
     Dosage: 50 MG, TID
  5. PARACETAMOL [Concomitant]
     Active Substance: ACETAMINOPHEN
     Dosage: 1 G, QD
  6. IBUPROFEN. [Concomitant]
     Active Substance: IBUPROFEN
     Dosage: 400 MG, TID

REACTIONS (7)
  - Malaise [Recovered/Resolved]
  - Genital herpes [Recovered/Resolved]
  - Pyrexia [Recovered/Resolved]
  - Local swelling [Recovered/Resolved]
  - Ear pain [Recovering/Resolving]
  - Genital pain [Recovered/Resolved]
  - Tonsillar inflammation [Recovered/Resolved]

NARRATIVE: CASE EVENT DATE: 2012
